FAERS Safety Report 4940103-6 (Version None)
Quarter: 2006Q1

REPORT INFORMATION
  Report Type: 
  Country: None (occurrence: None)
  Receive Date: 20060307
  Receipt Date: 20060228
  Transmission Date: 20060701
  Serious: Yes (Death)
  Sender: FDA-Public Use
  Company Number: 2006S1001772

PATIENT
  Age: 41 Year
  Sex: Male

DRUGS (3)
  1. FENTANYL TRANSDERMAL SYSTEM [Suspect]
     Indication: PAIN
     Dosage: 50 UG/HR; Q3D; TRANS
     Route: 062
  2. FENTANYL TRANSDERMAL SYSTEM [Suspect]
     Indication: UPPER LIMB FRACTURE
     Dosage: 50 UG/HR; Q3D; TRANS
     Route: 062
  3. FENTANYL TRANSDERMAL SYSTEM [Suspect]
     Indication: WRIST FRACTURE
     Dosage: 50 UG/HR; Q3D; TRANS
     Route: 062

REACTIONS (6)
  - LOSS OF CONSCIOUSNESS [None]
  - OVERDOSE [None]
  - PAIN [None]
  - ROAD TRAFFIC ACCIDENT [None]
  - UPPER LIMB FRACTURE [None]
  - WRIST FRACTURE [None]
